FAERS Safety Report 5269757-4 (Version None)
Quarter: 2007Q1

REPORT INFORMATION
  Report Type: 
  Country: None (occurrence: None)
  Receive Date: 20070320
  Receipt Date: 20070312
  Transmission Date: 20070707
  Serious: Yes (Hospitalization)
  Sender: FDA-Public Use
  Company Number: CH-ROCHE-487324

PATIENT
  Age: 46 Year
  Sex: Male

DRUGS (6)
  1. XELODA [Suspect]
     Route: 048
     Dates: start: 20070123, end: 20070123
  2. ANZEMET [Suspect]
     Indication: PROPHYLAXIS
     Dosage: REPORTED AS VIALS/DRIP - DURATION OF USE - 20 MINS
     Route: 042
     Dates: start: 20070123, end: 20070123
  3. TAXOTERE [Suspect]
     Route: 042
     Dates: start: 20070123, end: 20070123
  4. MEPHAMESONE [Suspect]
     Indication: PROPHYLAXIS
     Dosage: DURATION OF USE: 20 MINS.
     Route: 042
     Dates: start: 20070123, end: 20070123
  5. CISPLATIN [Suspect]
     Dosage: DURATION: 1 HOUR.
     Route: 042
     Dates: start: 20070123, end: 20070123
  6. EMEND [Concomitant]
     Indication: PROPHYLAXIS
     Route: 048
     Dates: start: 20070123, end: 20070123

REACTIONS (2)
  - INTESTINAL ISCHAEMIA [None]
  - LARGE INTESTINE PERFORATION [None]
